FAERS Safety Report 6403627-0 (Version None)
Quarter: 2009Q4

REPORT INFORMATION
  Report Type: 
  Country: None (occurrence: None)
  Receive Date: 20091016
  Receipt Date: 20091009
  Transmission Date: 20100525
  Serious: Yes (Other)
  Sender: FDA-Public Use
  Company Number: CA-JNJFOC-20091003079

PATIENT

DRUGS (1)
  1. TYLENOL W/ CODEINE NO. 4 [Suspect]
     Indication: DRUG USE FOR UNKNOWN INDICATION
     Route: 048

REACTIONS (2)
  - MEDICATION ERROR [None]
  - PRODUCT QUALITY ISSUE [None]
